FAERS Safety Report 4704980-6 (Version None)
Quarter: 2005Q3

REPORT INFORMATION
  Report Type: 
  Country: None (occurrence: None)
  Receive Date: 20050701
  Receipt Date: 20050512
  Transmission Date: 20060218
  Serious: Yes (Hospitalization)
  Sender: FDA-Public Use
  Company Number: JP-BRACCO-BRO-008680

PATIENT
  Sex: Female
  Weight: 43 kg

DRUGS (6)
  1. IOPAMIDOL [Suspect]
     Indication: CAROTID ARTERY STENOSIS
     Route: 013
     Dates: start: 20050415, end: 20050415
  2. IOPAMIDOL [Suspect]
     Indication: CEREBRAL INFARCTION
     Route: 013
     Dates: start: 20050415, end: 20050415
  3. IOPAMIDOL [Suspect]
     Route: 013
     Dates: start: 20050415, end: 20050415
  4. OMNIPAQUE ^AMERSHAM^ [Suspect]
     Indication: CEREBRAL INFARCTION
     Route: 042
     Dates: start: 20050411, end: 20050411
  5. OMNIPAQUE ^AMERSHAM^ [Suspect]
     Indication: COMPUTERISED TOMOGRAM
     Route: 042
     Dates: start: 20050411, end: 20050411
  6. PANALDINE [Suspect]
     Route: 048
     Dates: start: 20050407, end: 20050420

REACTIONS (6)
  - CONTRAST MEDIA REACTION [None]
  - DRUG ERUPTION [None]
  - HEPATOTOXICITY [None]
  - LIVER DISORDER [None]
  - PYREXIA [None]
  - SKIN TEST POSITIVE [None]
